FAERS Safety Report 20999660 (Version 1)
Quarter: 2022Q2

REPORT INFORMATION
  Report Type: Spontaneous
  Country: US (occurrence: US)
  Receive Date: 20220623
  Receipt Date: 20220623
  Transmission Date: 20220721
  Serious: No
  Sender: FDA-Public Use
  Company Number: US-PFIZER INC-202200869050

PATIENT
  Age: 52 Year
  Sex: Male

DRUGS (1)
  1. PAXLOVID [Suspect]
     Active Substance: NIRMATRELVIR\RITONAVIR
     Indication: COVID-19 treatment
     Dosage: UNK
     Dates: start: 20220613, end: 20220617

REACTIONS (7)
  - COVID-19 [Unknown]
  - Disease recurrence [Unknown]
  - Nausea [Unknown]
  - Taste disorder [Unknown]
  - Ageusia [Unknown]
  - Glossodynia [Unknown]
  - Oral candidiasis [Unknown]

NARRATIVE: CASE EVENT DATE: 20220621
